FAERS Safety Report 12485323 (Version 1)
Quarter: 2016Q2

REPORT INFORMATION
  Report Type: Not Available
  Country: None (occurrence: US)
  Receive Date: 20160621
  Receipt Date: 20160621
  Transmission Date: 20160815
  Serious: Yes (Hospitalization, Other)
  Sender: FDA-Public Use
  Company Number: US-AKORN-32528

PATIENT
  Age: 59 Year
  Sex: Female

DRUGS (1)
  1. LEVOFLOXACIN ORAL SOLUTION [Suspect]
     Active Substance: LEVOFLOXACIN

REACTIONS (8)
  - Mental disorder [None]
  - Dysuria [None]
  - Fatigue [None]
  - Chills [None]
  - Urinary tract infection [None]
  - Hypothermia [None]
  - Asthenia [None]
  - Pneumonia [None]
